FAERS Safety Report 25349359 (Version 1)
Quarter: 2025Q2

REPORT INFORMATION
  Report Type: Report from Study
  Country: US (occurrence: US)
  Receive Date: 20250522
  Receipt Date: 20250522
  Transmission Date: 20250716
  Serious: Yes (Other)
  Sender: MALLINCKRODT
  Company Number: US-MALLINCKRODT-MNK202502853

PATIENT
  Sex: Female

DRUGS (4)
  1. CORTICOTROPIN [Suspect]
     Active Substance: CORTICOTROPIN
     Indication: Neuromyelitis optica spectrum disorder
  2. CORTICOTROPIN [Suspect]
     Active Substance: CORTICOTROPIN
     Dosage: 80 UNITS
     Route: 058
     Dates: start: 20250506
  3. UPLIZNA [INEBILIZUMAB CDON] [Concomitant]
  4. ENSPRYNG [SATRALIZUMAB MWGE] [Concomitant]

REACTIONS (1)
  - Neuromyelitis optica spectrum disorder [Unknown]
